FAERS Safety Report 22871248 (Version 4)
Quarter: 2023Q4

REPORT INFORMATION
  Report Type: Other
  Country: IE (occurrence: None)
  Receive Date: 20230828
  Receipt Date: 20231019
  Transmission Date: 20240110
  Serious: Yes (Death, Other)
  Sender: FDA-Public Use
  Company Number: IE-ROCHE-3408692

PATIENT
  Sex: Female

DRUGS (3)
  1. LUNSUMIO [Suspect]
     Active Substance: MOSUNETUZUMAB-AXGB
     Indication: Follicular lymphoma
     Dosage: ON 12/JUL/2023, SHE RECEIVED LUNSUMIO 1 MG
     Route: 042
     Dates: start: 20230705, end: 20230719
  2. LUNSUMIO [Suspect]
     Active Substance: MOSUNETUZUMAB-AXGB
     Route: 042
     Dates: start: 20230719
  3. TOCILIZUMAB [Concomitant]
     Active Substance: TOCILIZUMAB
     Route: 065

REACTIONS (3)
  - Pseudomonal sepsis [Fatal]
  - Neutropenia [Unknown]
  - Cytopenia [Unknown]
